FAERS Safety Report 21753214 (Version 1)
Quarter: 2022Q4

REPORT INFORMATION
  Report Type: Spontaneous
  Country: US (occurrence: US)
  Receive Date: 20221220
  Receipt Date: 20221220
  Transmission Date: 20230113
  Serious: No
  Sender: FDA-Public Use
  Company Number: US-CELLTRION INC.-2022US001560

PATIENT

DRUGS (3)
  1. TRUXIMA [Suspect]
     Active Substance: RITUXIMAB-ABBS
     Indication: Heart transplant
     Dosage: 671 MG, NO FREQUENCY LISTED
     Dates: start: 20220121
  2. TRUXIMA [Suspect]
     Active Substance: RITUXIMAB-ABBS
     Dosage: 671 MG, NO FREQUENCY LISTED
     Dates: start: 20220128
  3. TRUXIMA [Suspect]
     Active Substance: RITUXIMAB-ABBS
     Dosage: 671 MG, NO FREQUENCY LISTED
     Dates: start: 20220204

REACTIONS (2)
  - Heart transplant [Unknown]
  - Off label use [Unknown]

NARRATIVE: CASE EVENT DATE: 20220121
